FAERS Safety Report 10307579 (Version 5)
Quarter: 2014Q3

REPORT INFORMATION
  Report Type: Report from Study
  Country: CA (occurrence: CA)
  Receive Date: 20140716
  Receipt Date: 20140729
  Transmission Date: 20150326
  Serious: Yes (Hospitalization, Other)
  Sender: FDA-Public Use
  Company Number: CA-ROCHE-1429368

PATIENT
  Age: 21 Year
  Sex: Male

DRUGS (13)
  1. RITUXAN [Suspect]
     Active Substance: RITUXIMAB
     Route: 042
     Dates: start: 2004
  2. DEXILANT [Concomitant]
     Active Substance: DEXLANSOPRAZOLE
  3. PANTOLOC [Concomitant]
     Active Substance: PANTOPRAZOLE SODIUM
  4. METHYLPREDNISOLONE [Concomitant]
     Active Substance: METHYLPREDNISOLONE
     Route: 042
     Dates: start: 20140702, end: 20140702
  5. IMMUNOGLOBULIN [Concomitant]
     Active Substance: HUMAN IMMUNOGLOBULIN G
     Route: 042
  6. ELAVIL [Concomitant]
     Active Substance: AMITRIPTYLINE HYDROCHLORIDE
  7. ACETAMINOPHEN. [Concomitant]
     Active Substance: ACETAMINOPHEN
     Route: 048
     Dates: start: 20140702, end: 20140702
  8. AVAMYS [Concomitant]
     Active Substance: FLUTICASONE FUROATE
  9. HIZENTRA [Concomitant]
     Active Substance: HUMAN IMMUNOGLOBULIN G
     Dosage: STARTED OVER 5 YEARS AGO (BEFORE 2009)
     Route: 058
  10. RITUXAN [Suspect]
     Active Substance: RITUXIMAB
     Indication: LYMPHOID TISSUE HYPERPLASIA
     Route: 042
     Dates: start: 2007
  11. RITUXAN [Suspect]
     Active Substance: RITUXIMAB
     Indication: GLOMERULONEPHRITIS
     Dosage: FREQUENCY:  DAY 1 AND DAY 15 (FIRST RPAP DOSE)
     Route: 042
     Dates: start: 20140702, end: 20140702
  12. DOMPERIDONE [Concomitant]
     Active Substance: DOMPERIDONE
  13. VENOFER [Concomitant]
     Active Substance: IRON SUCROSE
     Indication: ANAEMIA
     Route: 042
     Dates: start: 20140709

REACTIONS (10)
  - Cough [Recovered/Resolved]
  - Abdominal pain [Not Recovered/Not Resolved]
  - Off label use [Unknown]
  - Viral infection [Unknown]
  - Skin exfoliation [Not Recovered/Not Resolved]
  - Purpura [Recovering/Resolving]
  - Lymphadenopathy [Unknown]
  - Pyrexia [Recovering/Resolving]
  - Skin fissures [Not Recovered/Not Resolved]
  - Serum sickness [Recovered/Resolved]

NARRATIVE: CASE EVENT DATE: 201406
